FAERS Safety Report 6234785-9 (Version None)
Quarter: 2009Q2

REPORT INFORMATION
  Report Type: 
  Country: None (occurrence: None)
  Receive Date: 20090618
  Receipt Date: 20090610
  Transmission Date: 20091009
  Serious: Yes (Other)
  Sender: FDA-Public Use
  Company Number: PHHY2009AT22767

PATIENT
  Sex: Male
  Weight: 75 kg

DRUGS (1)
  1. EXJADE [Suspect]
     Indication: TRANSFUSION
     Dosage: UNK

REACTIONS (3)
  - OEDEMA PERIPHERAL [None]
  - PAIN IN EXTREMITY [None]
  - PARALYSIS [None]
